FAERS Safety Report 22751804 (Version 2)
Quarter: 2024Q2

REPORT INFORMATION
  Report Type: Spontaneous
  Country: US (occurrence: US)
  Receive Date: 20230726
  Receipt Date: 20240528
  Transmission Date: 20240716
  Serious: No
  Sender: FDA-Public Use
  Company Number: US-BRACCO-2023US02563

PATIENT
  Sex: Male

DRUGS (1)
  1. READI-CAT 2 [Suspect]
     Active Substance: BARIUM SULFATE
     Indication: Diagnostic procedure
     Dosage: UNK UNK, SINGLE

REACTIONS (1)
  - Therapeutic response unexpected [Unknown]
